FAERS Safety Report 10567145 (Version 3)
Quarter: 2015Q2

REPORT INFORMATION
  Report Type: Report from Study
  Country: US (occurrence: US)
  Receive Date: 20141105
  Receipt Date: 20150527
  Transmission Date: 20150821
  Serious: Yes (Hospitalization, Other)
  Sender: FDA-Public Use
  Company Number: US-GILEAD-2014-0121438

PATIENT
  Age: 6 Year
  Sex: Female

DRUGS (3)
  1. AMBRISENTAN [Suspect]
     Active Substance: AMBRISENTAN
     Indication: RESTRICTIVE PULMONARY DISEASE
  2. REVATIO [Concomitant]
     Active Substance: SILDENAFIL CITRATE
  3. AMBRISENTAN [Suspect]
     Active Substance: AMBRISENTAN
     Indication: PULMONARY ARTERIAL HYPERTENSION
     Dosage: 5 MG, QD
     Route: 065
     Dates: start: 20140912

REACTIONS (2)
  - Off label use [Not Recovered/Not Resolved]
  - Pulmonary hypertension [Unknown]

NARRATIVE: CASE EVENT DATE: 20140912
